FAERS Safety Report 15124896 (Version 1)
Quarter: 2018Q3

REPORT INFORMATION
  Report Type: Spontaneous
  Country: GB (occurrence: GB)
  Receive Date: 20180710
  Receipt Date: 20180710
  Transmission Date: 20181010
  Serious: Yes (Other)
  Sender: FDA-Public Use
  Company Number: PHHY2018GB037193

PATIENT
  Age: 14 Year

DRUGS (3)
  1. ALEMTUZUMAB [Suspect]
     Active Substance: ALEMTUZUMAB
     Indication: BONE MARROW CONDITIONING REGIMEN
     Route: 065
  2. TREOSULFAN [Suspect]
     Active Substance: TREOSULFAN
     Indication: BONE MARROW CONDITIONING REGIMEN
     Route: 065
  3. FLUDARABINE PHOSPHATE. [Suspect]
     Active Substance: FLUDARABINE PHOSPHATE
     Indication: BONE MARROW CONDITIONING REGIMEN
     Route: 065

REACTIONS (2)
  - Mucoepidermoid carcinoma of salivary gland [Unknown]
  - Off label use [Unknown]
